FAERS Safety Report 7478246-8 (Version None)
Quarter: 2011Q2

REPORT INFORMATION
  Report Type: 
  Country: None (occurrence: None)
  Receive Date: 20110513
  Receipt Date: 20110511
  Transmission Date: 20111010
  Serious: Yes (Other)
  Sender: FDA-Public Use
  Company Number: US-ABBOTT-11P-163-0725087-00

PATIENT
  Age: 59 Year
  Sex: Male

DRUGS (4)
  1. TRIAMCINOLONE [Suspect]
     Indication: PRODUCT USED FOR UNKNOWN INDICATION
     Dosage: SINGLE DOSE
     Route: 014
  2. LOPINAVIR WITH RITONAVIR [Suspect]
     Indication: HIV INFECTION
  3. TENOFOVIR DISOPROXIL FUMARATE [Concomitant]
     Indication: ANTIRETROVIRAL THERAPY
  4. EMTRICITABINE [Concomitant]
     Indication: ANTIRETROVIRAL THERAPY

REACTIONS (1)
  - ADRENAL INSUFFICIENCY [None]
